FAERS Safety Report 18235944 (Version 1)
Quarter: 2020Q3

REPORT INFORMATION
  Report Type: Spontaneous
  Country: BF (occurrence: BF)
  Receive Date: 20200905
  Receipt Date: 20200905
  Transmission Date: 20201103
  Serious: Yes (Other)
  Sender: FDA-Public Use
  Company Number: NVSC2020BF242498

PATIENT
  Age: 51 Year
  Sex: Male

DRUGS (3)
  1. LINCOMYCIN. [Suspect]
     Active Substance: LINCOMYCIN
     Indication: CHRONIC MYELOID LEUKAEMIA
     Dosage: 1000 MG, BID
     Route: 065
  2. GLIVEC [Suspect]
     Active Substance: IMATINIB MESYLATE
     Indication: CHRONIC MYELOID LEUKAEMIA
     Dosage: 400 MG, QD (400 MG 4X100 MG TABLETS)
     Route: 048
     Dates: start: 20190228
  3. ZYLORIC [Suspect]
     Active Substance: ALLOPURINOL
     Indication: CHRONIC MYELOID LEUKAEMIA
     Dosage: 300 MG, QW
     Route: 065

REACTIONS (6)
  - Arteriovenous fistula [Unknown]
  - Myelocytosis [Unknown]
  - Conjunctival pallor [Unknown]
  - Splenomegaly [Unknown]
  - Osteomyelitis chronic [Unknown]
  - Blood count abnormal [Unknown]

NARRATIVE: CASE EVENT DATE: 20190225
